FAERS Safety Report 8812542 (Version 1)
Quarter: 2012Q4

REPORT INFORMATION
  Report Type: Report from Study
  Country: US (occurrence: US)
  Receive Date: 20120927
  Receipt Date: 20120927
  Transmission Date: 20130627
  Serious: No
  Sender: FDA-Public Use
  Company Number: US-VERTEX PHARMACEUTICAL INC.-2012-020367

PATIENT
  Age: 58 Year
  Sex: Female
  Weight: 63 kg

DRUGS (8)
  1. VX-950 [Suspect]
     Indication: HEPATITIS C
     Dosage: 750 mg, tid
     Route: 048
  2. PEGASYS [Concomitant]
     Indication: HEPATITIS C
  3. RIBAVIRIN [Concomitant]
     Indication: HEPATITIS C
     Dosage: 200 mg, UNK
  4. DIOVAN HCT [Concomitant]
  5. HYDROCHLOROTH [Concomitant]
     Dosage: 25 mg, UNK
  6. METHYLDOPA [Concomitant]
     Dosage: 500 mg, UNK
  7. PROPRANOLOL [Concomitant]
     Dosage: 20 mg, UNK
  8. FOLIC ACID [Concomitant]

REACTIONS (2)
  - Influenza like illness [Unknown]
  - Fatigue [Unknown]
